FAERS Safety Report 5621735-9 (Version None)
Quarter: 2008Q1

REPORT INFORMATION
  Report Type: 
  Country: None (occurrence: None)
  Receive Date: 20080211
  Receipt Date: 20080129
  Transmission Date: 20080703
  Serious: Yes (Disabling)
  Sender: FDA-Public Use
  Company Number: GB-BAUSCH-2008BL000359

PATIENT
  Age: 65 Year
  Sex: Female

DRUGS (8)
  1. GENTAMICIN [Suspect]
     Indication: STAPHYLOCOCCAL SEPSIS
     Route: 042
     Dates: start: 20071218, end: 20071218
  2. ALFACALCIDOL [Concomitant]
  3. CALCICHEW [Concomitant]
  4. FLUCLOXACILLIN [Concomitant]
  5. GLICLAZIDE [Concomitant]
  6. NIFEDIPINE [Concomitant]
  7. VANCOMYCIN [Concomitant]
  8. WARFARIN SODIUM [Concomitant]

REACTIONS (1)
  - OTOTOXICITY [None]
